FAERS Safety Report 24663593 (Version 1)
Quarter: 2024Q4

REPORT INFORMATION
  Report Type: Spontaneous
  Country: GB (occurrence: GB)
  Receive Date: 20241126
  Receipt Date: 20241126
  Transmission Date: 20250115
  Serious: Yes (Other)
  Sender: AUROBINDO
  Company Number: GB-MHRA-EMIS-1496-7f121539-a680-476d-9400-d93a3f7d3be6

PATIENT
  Age: 76 Year
  Sex: Male
  Weight: 70 kg

DRUGS (2)
  1. DOXAZOSIN [Suspect]
     Active Substance: DOXAZOSIN\DOXAZOSIN MESYLATE
     Indication: Product used for unknown indication
     Dosage: 1 DOSAGE FORM, ONCE A DAY
     Route: 065
     Dates: start: 20241009, end: 20241109
  2. Comirnaty [Concomitant]
     Indication: Product used for unknown indication
     Dosage: 0.3 MILLILITER
     Route: 030
     Dates: start: 20241012, end: 20241012

REACTIONS (1)
  - Visual impairment [Recovered/Resolved]
